FAERS Safety Report 4289778-8 (Version None)
Quarter: 2004Q1

REPORT INFORMATION
  Report Type: 
  Country: None (occurrence: None)
  Receive Date: 20040210
  Receipt Date: 20040105
  Transmission Date: 20041129
  Serious: Yes (Life-Threatening, Hospitalization)
  Sender: FDA-Public Use
  Company Number: NL-GLAXOSMITHKLINE-B0319051A

PATIENT
  Age: 47 Year
  Sex: Male
  Weight: 80 kg

DRUGS (3)
  1. ZYBAN [Suspect]
     Dosage: 150MG VARIABLE DOSE
     Route: 048
     Dates: start: 20031219, end: 20031230
  2. TRAMADOL HCL [Concomitant]
     Dosage: 200MG TWICE PER DAY
     Route: 048
     Dates: start: 20020207
  3. PAINKILLER [Concomitant]
     Indication: HERNIA

REACTIONS (5)
  - CONVULSION [None]
  - EPILEPSY [None]
  - MUSCLE CONTRACTIONS INVOLUNTARY [None]
  - PARALYSIS [None]
  - SALIVARY HYPERSECRETION [None]
